FAERS Safety Report 21346502 (Version 1)
Quarter: 2022Q3

REPORT INFORMATION
  Report Type: Other
  Country: GB (occurrence: GB)
  Receive Date: 20220917
  Receipt Date: 20220917
  Transmission Date: 20221027
  Serious: No
  Sender: FDA-Public Use
  Company Number: GB-MHRA-MED-202209051426079300-DKVRW

PATIENT
  Age: 56 Year
  Sex: Male

DRUGS (2)
  1. EMTRICITABINE\TENOFOVIR DISOPROXIL FUMARATE [Suspect]
     Active Substance: EMTRICITABINE\TENOFOVIR DISOPROXIL FUMARATE
     Indication: Prophylaxis against HIV infection
     Dosage: TWO TABLETS (200/245MG) ONCE, THEN ONE TABLET A DAY FOR THE FOLLOWING TWO DAYS
     Route: 048
  2. EMTRICITABINE\TENOFOVIR DISOPROXIL FUMARATE [Suspect]
     Active Substance: EMTRICITABINE\TENOFOVIR DISOPROXIL FUMARATE
     Dosage: TWO TABLETS (200/245MG) ONCE, THEN ONE TABLET A DAY FOR THE FOLLOWING TWO DAYS
     Route: 048
     Dates: start: 20220808, end: 20220809

REACTIONS (1)
  - Exfoliative rash [Recovered/Resolved]
